FAERS Safety Report 9147026 (Version 29)
Quarter: 2015Q3

REPORT INFORMATION
  Report Type: Report from Study
  Country: CA (occurrence: CA)
  Receive Date: 20130307
  Receipt Date: 20150824
  Transmission Date: 20151125
  Serious: Yes (Death, Hospitalization, Other)
  Sender: FDA-Public Use
  Company Number: CA-ROCHE-1176029

PATIENT
  Age: 43 Year
  Sex: Female
  Weight: 71.75 kg

DRUGS (16)
  1. AVASTIN [Suspect]
     Active Substance: BEVACIZUMAB
     Route: 042
     Dates: start: 20150325, end: 20150415
  2. CISPLATIN. [Concomitant]
     Active Substance: CISPLATIN
     Route: 065
     Dates: start: 201310, end: 201401
  3. PAXIL (CANADA) [Concomitant]
     Route: 065
     Dates: start: 201404, end: 201407
  4. TRABECTEDIN [Concomitant]
     Active Substance: TRABECTEDIN
     Route: 065
     Dates: start: 201407, end: 201409
  5. CAELYX [Concomitant]
     Active Substance: DOXORUBICIN HYDROCHLORIDE
     Route: 065
     Dates: start: 20140908
  6. BUPROPION. [Concomitant]
     Active Substance: BUPROPION
     Indication: DEPRESSION
     Dosage: DISCONTINUED FOR 6 MONTHS
     Route: 065
  7. DEXAMETHASONE. [Concomitant]
     Active Substance: DEXAMETHASONE
     Indication: NEOPLASM MALIGNANT
  8. EMEND [Concomitant]
     Active Substance: APREPITANT
     Dosage: TAKEN WHILE ON CHEMO THEN DISCONTINUED
     Route: 065
  9. PAXIL (CANADA) [Concomitant]
     Route: 065
     Dates: start: 201310, end: 201401
  10. AVASTIN [Suspect]
     Active Substance: BEVACIZUMAB
     Indication: OVARIAN CANCER
     Dosage: LAST DOSE OF INFUSION : 07/FEB/2013
     Route: 042
     Dates: start: 20121228
  11. AVASTIN [Suspect]
     Active Substance: BEVACIZUMAB
     Route: 042
     Dates: start: 20141015
  12. CISPLATIN. [Concomitant]
     Active Substance: CISPLATIN
     Indication: OVARIAN CANCER
     Route: 042
     Dates: start: 20121106, end: 20130307
  13. CISPLATIN. [Concomitant]
     Active Substance: CISPLATIN
     Route: 065
     Dates: start: 201404, end: 201407
  14. AVASTIN [Suspect]
     Active Substance: BEVACIZUMAB
     Route: 042
     Dates: start: 20130613, end: 20130905
  15. GEMZAR [Concomitant]
     Active Substance: GEMCITABINE HYDROCHLORIDE
     Indication: OVARIAN CANCER
     Route: 042
     Dates: start: 20121106, end: 20130307
  16. STEMETIL [Concomitant]
     Active Substance: PROCHLORPERAZINE MALEATE
     Dosage: TAKEN WHILE ON CHEMO THEN DISCONTINUED
     Route: 065

REACTIONS (27)
  - Haemoglobin decreased [Unknown]
  - Ascites [Unknown]
  - Epistaxis [Not Recovered/Not Resolved]
  - Diarrhoea [Unknown]
  - Nausea [Recovering/Resolving]
  - Off label use [Unknown]
  - Blood pressure systolic decreased [Unknown]
  - Dyspnoea [Unknown]
  - Dizziness [Unknown]
  - Rhinitis [Recovered/Resolved]
  - Haemorrhoids [Recovering/Resolving]
  - Device related infection [Unknown]
  - Intestinal obstruction [Not Recovered/Not Resolved]
  - Gastrointestinal haemorrhage [Recovering/Resolving]
  - Nasopharyngitis [Recovered/Resolved]
  - Hypotension [Unknown]
  - Hypertension [Recovering/Resolving]
  - Gastrointestinal disorder [Unknown]
  - Disease progression [Fatal]
  - Body temperature decreased [Unknown]
  - Blood magnesium decreased [Unknown]
  - Bacteraemia [Unknown]
  - Weight decreased [Not Recovered/Not Resolved]
  - Chest discomfort [Unknown]
  - Infusion related reaction [Unknown]
  - Vomiting [Unknown]
  - Fatigue [Recovering/Resolving]

NARRATIVE: CASE EVENT DATE: 20130106
